FAERS Safety Report 5000090-1 (Version None)
Quarter: 2006Q2

REPORT INFORMATION
  Report Type: 
  Country: None (occurrence: None)
  Receive Date: 20060501
  Receipt Date: 20060419
  Transmission Date: 20061013
  Serious: Yes (Disabling, Other)
  Sender: FDA-Public Use
  Company Number: 2004097107

PATIENT
  Age: 46 Year
  Sex: Male

DRUGS (2)
  1. LIPITOR [Suspect]
     Indication: HYPERLIPIDAEMIA
     Dosage: 40 MG (40 MG, 1 IN 1 D), ORAL
     Route: 048
     Dates: start: 19991109
  2. LEVOTHYROXINE SODIUM [Concomitant]

REACTIONS (3)
  - HYPOTHYROIDISM [None]
  - MYALGIA [None]
  - THYROID GLAND CANCER [None]
